FAERS Safety Report 8528654 (Version 6)
Quarter: 2013Q2

REPORT INFORMATION
  Report Type: Spontaneous
  Country: US (occurrence: US)
  Receive Date: 20120424
  Receipt Date: 20130625
  Transmission Date: 20140414
  Serious: Yes (Hospitalization, Other)
  Sender: FDA-Public Use
  Company Number: US-009507513-1204USA02814

PATIENT
  Sex: Female

DRUGS (7)
  1. FOSAMAX [Suspect]
     Indication: OSTEOPOROSIS
     Dosage: 10 MG, QD
     Route: 048
     Dates: start: 199908, end: 200208
  2. FOSAMAX [Suspect]
     Indication: OSTEOPENIA
     Dosage: 70 MG, UNK
     Route: 048
     Dates: start: 20020819
  3. FOSAMAX [Suspect]
     Dosage: 35 MG, UNK
     Route: 048
  4. FOSAMAX [Suspect]
     Dosage: 35 MG QD
     Route: 048
     Dates: start: 20120613
  5. VITAMIN D (UNSPECIFIED) [Concomitant]
     Indication: PRODUCT USED FOR UNKNOWN INDICATION
     Dosage: 1000 U, QD
     Route: 048
     Dates: start: 2000
  6. ALENDRONATE SODIUM [Suspect]
     Indication: PRODUCT USED FOR UNKNOWN INDICATION
     Dosage: 70 MG, UNK
     Route: 048
     Dates: start: 20080216, end: 200812
  7. ALENDRONATE SODIUM [Suspect]
     Indication: PRODUCT USED FOR UNKNOWN INDICATION
     Dosage: 35 MG, UNK
     Route: 048
     Dates: start: 20090211, end: 201110

REACTIONS (67)
  - Open reduction of fracture [Unknown]
  - Acute respiratory failure [Unknown]
  - Ileus paralytic [Unknown]
  - Arteriosclerosis coronary artery [Unknown]
  - Rectal haemorrhage [Unknown]
  - Uterine disorder [Unknown]
  - Transfusion [Recovered/Resolved]
  - Respiratory failure [Unknown]
  - Peptic ulcer [Unknown]
  - Non-cardiac chest pain [Unknown]
  - Chronic obstructive pulmonary disease [Unknown]
  - Pneumonia [Unknown]
  - Myelodysplastic syndrome [Unknown]
  - Chronic obstructive pulmonary disease [Unknown]
  - Pneumonia [Unknown]
  - Gastrointestinal haemorrhage [Unknown]
  - Haemorrhoids [Unknown]
  - Anaemia [Unknown]
  - Renal failure chronic [Unknown]
  - Transfusion [Unknown]
  - Femur fracture [Unknown]
  - Gastrooesophageal reflux disease [Unknown]
  - Gastritis [Unknown]
  - Low turnover osteopathy [Unknown]
  - Tooth infection [Unknown]
  - Patella fracture [Unknown]
  - Fall [Unknown]
  - Infection [Unknown]
  - Infection [Unknown]
  - Infection [Unknown]
  - Chronic obstructive pulmonary disease [Unknown]
  - Asthma [Unknown]
  - Pain [Unknown]
  - Anxiety [Unknown]
  - Oedema [Unknown]
  - Transient ischaemic attack [Unknown]
  - Cough [Unknown]
  - Dyslipidaemia [Unknown]
  - Age-related macular degeneration [Unknown]
  - Essential hypertension [Unknown]
  - Arteriosclerosis coronary artery [Unknown]
  - Cardiac failure congestive [Unknown]
  - Bronchitis chronic [Unknown]
  - Infective exacerbation of chronic obstructive airways disease [Unknown]
  - Haematuria [Unknown]
  - Actinic keratosis [Unknown]
  - Joint effusion [Unknown]
  - Trigger finger [Unknown]
  - Insomnia [Unknown]
  - Emphysema [Unknown]
  - Anaemia [Unknown]
  - Haematochezia [Unknown]
  - Large intestine polyp [Not Recovered/Not Resolved]
  - Hiatus hernia [Unknown]
  - Scoliosis [Unknown]
  - Osteoarthritis [Unknown]
  - Intervertebral disc degeneration [Unknown]
  - Diabetes mellitus [Unknown]
  - Lumbar radiculopathy [Unknown]
  - Rhinitis allergic [Unknown]
  - Gastritis erosive [Unknown]
  - Hiatus hernia [Unknown]
  - Anaemia of chronic disease [Unknown]
  - Gastrointestinal haemorrhage [Unknown]
  - Back pain [Unknown]
  - Oesophagitis [Unknown]
  - Gastritis [Unknown]
